FAERS Safety Report 6443883-6 (Version None)
Quarter: 2009Q4

REPORT INFORMATION
  Report Type: 
  Country: None (occurrence: None)
  Receive Date: 20091117
  Receipt Date: 20091113
  Transmission Date: 20100525
  Serious: Yes (Life-Threatening, Hospitalization)
  Sender: FDA-Public Use
  Company Number: US-MERCK-0911USA01285

PATIENT
  Sex: Male

DRUGS (9)
  1. PROSCAR [Suspect]
     Indication: BENIGN PROSTATIC HYPERPLASIA
     Route: 048
     Dates: start: 20050610
  2. FLOMAX (MORNIFLUMATE) [Concomitant]
     Route: 065
  3. HYTRIN [Concomitant]
     Route: 065
  4. METFORMIN [Concomitant]
     Route: 065
  5. ASPIRIN [Concomitant]
     Route: 065
  6. VITAMINS (UNSPECIFIED) [Concomitant]
     Route: 065
  7. SIMVASTATIN [Concomitant]
     Route: 065
  8. LISINOPRIL [Concomitant]
     Route: 065
  9. OMEPRAZOLE [Concomitant]
     Route: 065

REACTIONS (2)
  - SQUAMOUS CELL CARCINOMA [None]
  - WRONG TECHNIQUE IN DRUG USAGE PROCESS [None]
